FAERS Safety Report 6657493-9 (Version None)
Quarter: 2010Q1

REPORT INFORMATION
  Report Type: 
  Country: None (occurrence: None)
  Receive Date: 20100330
  Receipt Date: 20100325
  Transmission Date: 20100710
  Serious: Yes (Death, Hospitalization)
  Sender: FDA-Public Use
  Company Number: PHHY2010DE11990

PATIENT
  Sex: Female
  Weight: 125 kg

DRUGS (7)
  1. NO TREATMENT RECEIVED NOMED [Suspect]
  2. RASILEZ HCT [Suspect]
     Indication: HYPERTENSION
     Dosage: 1 DF PER DAY
     Route: 048
  3. ACE INHIBITOR NOS [Concomitant]
  4. DIURETICS [Concomitant]
  5. MOBLOC [Concomitant]
     Indication: HYPERTENSION
     Dosage: UNK
     Route: 048
     Dates: start: 20070705
  6. METOPROLOL [Concomitant]
     Indication: HYPERTENSION
     Dosage: 47.5 MG PER DAY
     Route: 048
     Dates: start: 20090617
  7. RENIN-ANGIOTENSIN SYSTEM, AGENTS ACTING ON [Concomitant]
     Dosage: UNK
     Dates: start: 20090401

REACTIONS (4)
  - FALL [None]
  - FEMUR FRACTURE [None]
  - PLASMACYTOMA [None]
  - RENAL FAILURE [None]
